FAERS Safety Report 12653537 (Version 1)
Quarter: 2016Q3

REPORT INFORMATION
  Report Type: Spontaneous
  Country: US (occurrence: US)
  Receive Date: 20160815
  Receipt Date: 20160815
  Transmission Date: 20161109
  Serious: No
  Sender: FDA-Public Use
  Company Number: US-009507513-1608USA006563

PATIENT
  Sex: Female
  Weight: 61.22 kg

DRUGS (1)
  1. NEXPLANON [Suspect]
     Active Substance: ETONOGESTREL
     Indication: CONTRACEPTION
     Dosage: 1 ROD UP TO 3 YEARS, LEFT ARM  IMPLANT
     Route: 059
     Dates: start: 20160720

REACTIONS (8)
  - Hypoaesthesia [Unknown]
  - Headache [Unknown]
  - Paraesthesia [Unknown]
  - Back pain [Unknown]
  - Dizziness [Unknown]
  - Mood swings [Unknown]
  - Poor peripheral circulation [Unknown]
  - Depression [Unknown]

NARRATIVE: CASE EVENT DATE: 2016
